FAERS Safety Report 4959012-1 (Version None)
Quarter: 2006Q1

REPORT INFORMATION
  Report Type: 
  Country: None (occurrence: None)
  Receive Date: 20060324
  Receipt Date: 20060307
  Transmission Date: 20060701
  Serious: No
  Sender: FDA-Public Use
  Company Number: US200603002946

PATIENT
  Age: 40 Year
  Sex: Male
  Weight: 134.2 kg

DRUGS (1)
  1. ZYPREXA [Suspect]
     Indication: POST-TRAUMATIC STRESS DISORDER
     Dosage: 2.5 MG, EACH EVENING, ORAL
     Route: 048
     Dates: end: 20040809

REACTIONS (11)
  - ANXIETY [None]
  - CONSTIPATION [None]
  - DIABETES MELLITUS [None]
  - DRUG ABUSER [None]
  - ERECTILE DYSFUNCTION [None]
  - HYPERGLYCAEMIA [None]
  - JOINT SPRAIN [None]
  - NOCTURIA [None]
  - RECTAL HAEMORRHAGE [None]
  - THIRST [None]
  - WEIGHT INCREASED [None]
